FAERS Safety Report 17938192 (Version 2)
Quarter: 2020Q3

REPORT INFORMATION
  Report Type: Spontaneous
  Country: JP (occurrence: JP)
  Receive Date: 20200624
  Receipt Date: 20200812
  Transmission Date: 20201103
  Serious: Yes (Hospitalization)
  Sender: FDA-Public Use
  Company Number: JP-SHIRE-JP202002910

PATIENT

DRUGS (3)
  1. LIALDA [Suspect]
     Active Substance: MESALAMINE
     Indication: COLITIS ULCERATIVE
     Dosage: 4800 MILLIGRAM, 1X/DAY:QD
     Route: 048
     Dates: start: 20191210, end: 20200101
  2. LIALDA [Suspect]
     Active Substance: MESALAMINE
     Dosage: 4800 MILLIGRAM, 1X/DAY:QD
     Route: 048
     Dates: start: 20191216, end: 20200104
  3. PREDNISOLONE. [Concomitant]
     Active Substance: PREDNISOLONE
     Indication: COLITIS ULCERATIVE

REACTIONS (1)
  - Drug intolerance [Recovering/Resolving]

NARRATIVE: CASE EVENT DATE: 20200101
